FAERS Safety Report 7733313-6 (Version None)
Quarter: 2011Q3

REPORT INFORMATION
  Report Type: 
  Country: None (occurrence: None)
  Receive Date: 20110907
  Receipt Date: 20110825
  Transmission Date: 20111222
  Serious: Yes (Hospitalization, Other)
  Sender: FDA-Public Use
  Company Number: US-BAYER-201011129NA

PATIENT
  Age: 32 Year
  Sex: Female
  Weight: 74.83 kg

DRUGS (4)
  1. YAZ [Suspect]
     Indication: PRODUCT USED FOR UNKNOWN INDICATION
     Dosage: UNK
     Route: 048
     Dates: start: 20070827, end: 20090701
  2. IBUPROFEN [Concomitant]
     Dosage: UNK UNK, TID
     Dates: start: 20090408
  3. ATROPINE [Concomitant]
     Dosage: UNK
     Route: 047
     Dates: start: 20090501
  4. NAPROXEN [Concomitant]
     Dosage: UNK UNK, BID
     Dates: start: 20090501, end: 20090501

REACTIONS (4)
  - AGRAPHIA [None]
  - DYSPHAGIA [None]
  - THROMBOTIC STROKE [None]
  - ABASIA [None]
